FAERS Safety Report 14705337 (Version 1)
Quarter: 2018Q2

REPORT INFORMATION
  Report Type: Spontaneous
  Country: AU (occurrence: AU)
  Receive Date: 20180402
  Receipt Date: 20180402
  Transmission Date: 20180711
  Serious: Yes (Other)
  Sender: FDA-Public Use
  Company Number: AU-IMPAX LABORATORIES, INC-2018-IPXL-00986

PATIENT
  Age: 89 Year
  Sex: Female

DRUGS (1)
  1. SOTALOL HYDROCHLORIDE. [Suspect]
     Active Substance: SOTALOL HYDROCHLORIDE
     Indication: ATRIAL FIBRILLATION
     Dosage: 80 MG, 2 /DAY
     Route: 065

REACTIONS (5)
  - Torsade de pointes [Unknown]
  - Ventricular fibrillation [Unknown]
  - Blood pressure decreased [Recovered/Resolved]
  - Aortic valve incompetence [Recovered/Resolved]
  - Ventricular tachycardia [Unknown]
